FAERS Safety Report 9409477 (Version 1)
Quarter: 2013Q3

REPORT INFORMATION
  Report Type: Spontaneous
  Country: AU (occurrence: AU)
  Receive Date: 20130719
  Receipt Date: 20130719
  Transmission Date: 20140515
  Serious: Yes (Death)
  Sender: FDA-Public Use
  Company Number: AU-BAYER-2013-087068

PATIENT
  Age: 64 Year
  Sex: Male

DRUGS (1)
  1. NEXAVAR 200 MG [Suspect]
     Indication: RENAL CANCER METASTATIC
     Dosage: UNK

REACTIONS (1)
  - Metastatic renal cell carcinoma [Fatal]
